FAERS Safety Report 10166401 (Version 1)
Quarter: 2014Q2

REPORT INFORMATION
  Report Type: Spontaneous
  Country: US (occurrence: US)
  Receive Date: 20140512
  Receipt Date: 20140512
  Transmission Date: 20141212
  Serious: No
  Sender: FDA-Public Use
  Company Number: US-TEVA-467711USA

PATIENT
  Sex: 0

DRUGS (1)
  1. GRANIX [Suspect]
     Dosage: 300 MCG/0.5 ML

REACTIONS (1)
  - Neutrophil count increased [Unknown]
